FAERS Safety Report 24976762 (Version 1)
Quarter: 2025Q1

REPORT INFORMATION
  Report Type: Report from Study
  Country: US (occurrence: US)
  Receive Date: 20250217
  Receipt Date: 20250217
  Transmission Date: 20250408
  Serious: Yes (Other)
  Sender: ACADIA PHARMACEUTICALS
  Company Number: US-ACADIA PHARMACEUTICALS INC.-ACA-2025-PIM-001523

PATIENT
  Sex: Female

DRUGS (15)
  1. NUPLAZID [Suspect]
     Active Substance: PIMAVANSERIN TARTRATE
     Indication: Parkinson^s disease
     Dosage: 34 MILLIGRAM, QD
     Route: 048
  2. NUPLAZID [Suspect]
     Active Substance: PIMAVANSERIN TARTRATE
     Indication: Hallucination
  3. NUPLAZID [Suspect]
     Active Substance: PIMAVANSERIN TARTRATE
     Indication: Delusion
  4. ASPIRIN [Concomitant]
     Active Substance: ASPIRIN
  5. CARBIDOPA [Concomitant]
     Active Substance: CARBIDOPA
  6. FLUTICASONE [Concomitant]
     Active Substance: FLUTICASONE
  7. GLIPIZIDE [Concomitant]
     Active Substance: GLIPIZIDE
  8. IRON [Concomitant]
     Active Substance: IRON
  9. JANUVIA [Concomitant]
     Active Substance: SITAGLIPTIN PHOSPHATE
  10. LISINOPRIL [Concomitant]
     Active Substance: LISINOPRIL
  11. METFORMIN HYDROCHLORIDE [Concomitant]
     Active Substance: METFORMIN HYDROCHLORIDE
  12. VITAMINS [Concomitant]
     Active Substance: VITAMINS
  13. MYRBETRIQ [Concomitant]
     Active Substance: MIRABEGRON
  14. PRAVASTATIN [Concomitant]
     Active Substance: PRAVASTATIN
  15. ERGOCALCIFEROL [Concomitant]
     Active Substance: ERGOCALCIFEROL

REACTIONS (5)
  - Blindness [Not Recovered/Not Resolved]
  - Hallucination, visual [Not Recovered/Not Resolved]
  - Balance disorder [Not Recovered/Not Resolved]
  - Depressed mood [Not Recovered/Not Resolved]
  - Confusional state [Not Recovered/Not Resolved]
